FAERS Safety Report 19284401 (Version 1)
Quarter: 2021Q2

REPORT INFORMATION
  Report Type: Spontaneous
  Country: US (occurrence: US)
  Receive Date: 20210521
  Receipt Date: 20210521
  Transmission Date: 20210717
  Serious: Yes (Hospitalization, Other)
  Sender: FDA-Public Use
  Company Number: US-SA-2021SA160332

PATIENT
  Age: 75 Year
  Sex: Male
  Weight: 98 kg

DRUGS (3)
  1. TYVASO [Suspect]
     Active Substance: TREPROSTINIL
     Indication: PULMONARY ARTERIAL HYPERTENSION
     Dosage: 06MG, CONCENTRATION OF 0.6 MG/ML),18?54 ?G (3?9 BREATHS), FOUR TIMES A DAY, THERAPY STATUS:ONGOING
     Route: 055
     Dates: start: 20210414
  2. AMBIEN [Suspect]
     Active Substance: ZOLPIDEM TARTRATE
     Indication: PRODUCT USED FOR UNKNOWN INDICATION
     Dosage: HANDFUL OF AMBIEN
     Dates: start: 20210414
  3. ELIQUIS [Concomitant]
     Active Substance: APIXABAN
     Dosage: UNK

REACTIONS (2)
  - Intentional overdose [Unknown]
  - Suicide attempt [Unknown]
